FAERS Safety Report 10590634 (Version 1)
Quarter: 2014Q4

REPORT INFORMATION
  Report Type: Spontaneous
  Country: AU (occurrence: AU)
  Receive Date: 20141118
  Receipt Date: 20141118
  Transmission Date: 20150529
  Serious: Yes (Other)
  Sender: FDA-Public Use
  Company Number: AU-PFIZER INC-2014310322

PATIENT
  Sex: Male

DRUGS (1)
  1. XANAX [Suspect]
     Active Substance: ALPRAZOLAM

REACTIONS (11)
  - Restlessness [Unknown]
  - Dysstasia [Unknown]
  - Dyspnoea [Unknown]
  - Appetite disorder [Unknown]
  - Myocardial infarction [Unknown]
  - Feeling abnormal [Unknown]
  - Negative thoughts [Unknown]
  - Drug ineffective [Unknown]
  - Drug withdrawal syndrome [Unknown]
  - Anxiety [Unknown]
  - Hypercholesterolaemia [Unknown]
